FAERS Safety Report 6109217-1 (Version None)
Quarter: 2009Q1

REPORT INFORMATION
  Report Type: 
  Country: None (occurrence: None)
  Receive Date: 20090310
  Receipt Date: 20090303
  Transmission Date: 20090719
  Serious: Yes (Death)
  Sender: FDA-Public Use
  Company Number: PHHY2009JP08440

PATIENT
  Sex: Male
  Weight: 48 kg

DRUGS (2)
  1. DIOVAN [Suspect]
     Indication: HYPERTENSION
     Dosage: 80 MG, QD
     Route: 048
     Dates: start: 20070913, end: 20080213
  2. BUP-4 [Concomitant]
     Dosage: UNK
     Route: 048
     Dates: start: 20070410, end: 20080213

REACTIONS (1)
  - DEATH [None]
